FAERS Safety Report 24277020 (Version 2)
Quarter: 2024Q4

REPORT INFORMATION
  Report Type: Spontaneous
  Country: US (occurrence: US)
  Receive Date: 20240903
  Receipt Date: 20241004
  Transmission Date: 20250115
  Serious: No
  Sender: VIFOR
  Company Number: US-Vifor (International) Inc.-VIT-2024-07437

PATIENT
  Age: 25 Year
  Sex: Female
  Weight: 42 kg

DRUGS (11)
  1. MIRCERA [Suspect]
     Active Substance: METHOXY POLYETHYLENE GLYCOL-EPOETIN BETA
     Indication: Haemoglobin abnormal
     Route: 058
     Dates: start: 20201111
  2. MIRCERA [Suspect]
     Active Substance: METHOXY POLYETHYLENE GLYCOL-EPOETIN BETA
     Indication: Nephrogenic anaemia
     Dosage: DOSE INCREASED.
     Route: 058
     Dates: start: 20220111
  3. MIRCERA [Suspect]
     Active Substance: METHOXY POLYETHYLENE GLYCOL-EPOETIN BETA
     Dosage: DOSE REDUCED.
     Route: 058
     Dates: start: 20220624
  4. MIRCERA [Suspect]
     Active Substance: METHOXY POLYETHYLENE GLYCOL-EPOETIN BETA
     Dosage: ON 22-JUL-2024 DOSE NUMBER: 50; DOSE CATEGORY: 21-30 PLUS
     Route: 058
     Dates: start: 20240722, end: 20240726
  5. AMLODIPINE [Concomitant]
     Active Substance: AMLODIPINE BESYLATE
     Indication: Blood pressure increased
     Route: 048
     Dates: start: 20240614
  6. CALCITRIOL [Concomitant]
     Active Substance: CALCITRIOL
     Indication: Blood phosphorus increased
     Route: 048
     Dates: start: 20240312
  7. CARVEDILOL [Concomitant]
     Active Substance: CARVEDILOL
     Indication: Blood pressure increased
     Route: 048
     Dates: start: 20240118
  8. TELMISARTAN [Concomitant]
     Active Substance: TELMISARTAN
     Indication: Blood pressure increased
     Route: 048
     Dates: start: 20240614
  9. SENSIPAR [Concomitant]
     Active Substance: CINACALCET HYDROCHLORIDE
     Indication: Blood parathyroid hormone increased
     Dosage: 60 MG (2)
     Route: 048
     Dates: start: 20240118
  10. RENAPLEX D [Concomitant]
     Indication: End stage renal disease
     Route: 048
     Dates: start: 20230817
  11. SEVELAMER [Concomitant]
     Active Substance: SEVELAMER
     Indication: Blood phosphorus increased
     Route: 048
     Dates: start: 20230817

REACTIONS (5)
  - Drug hypersensitivity [Recovered/Resolved]
  - Rash [Recovered/Resolved]
  - Skin swelling [Recovered/Resolved]
  - Rash pruritic [Recovered/Resolved]
  - Intentional product use issue [Unknown]
